FAERS Safety Report 5191751-2 (Version None)
Quarter: 2006Q4

REPORT INFORMATION
  Report Type: 
  Country: None (occurrence: None)
  Receive Date: 20061219
  Receipt Date: 20061211
  Transmission Date: 20070319
  Serious: Yes (Hospitalization)
  Sender: FDA-Public Use
  Company Number: JP-2006-030052

PATIENT
  Age: 65 Year
  Sex: Female
  Weight: 50 kg

DRUGS (11)
  1. MAGNEVIST [Suspect]
     Indication: NUCLEAR MAGNETIC RESONANCE IMAGING
     Dosage: 15 ML, 3.75 ML/SEC, INTRAVENOUS
     Route: 042
     Dates: start: 20061005, end: 20061005
  2. CARVEDILOL [Concomitant]
  3. DIGOXIN [Concomitant]
  4. OMEPRAL (OMEPRAZOLE) [Concomitant]
  5. HALCION [Concomitant]
  6. PURSENNID /SCH/ (SENNOSIDE A+B CALCIUM, SENNOSIDE A+B) [Concomitant]
  7. HEPARIN [Concomitant]
  8. SOLDEM 1 (SODIUM LACTATE) [Concomitant]
  9. WARFARIN SODIUM [Concomitant]
  10. RESMIT (MEDAZEPAM) [Concomitant]
  11. ZOLPIDEM TARTRATE [Concomitant]

REACTIONS (7)
  - ANAPHYLACTOID REACTION [None]
  - DIZZINESS [None]
  - FEELING ABNORMAL [None]
  - NAUSEA [None]
  - RESPIRATORY FAILURE [None]
  - SHOCK [None]
  - VOMITING [None]
